FAERS Safety Report 19301270 (Version 1)
Quarter: 2021Q2

REPORT INFORMATION
  Report Type: Spontaneous
  Country: US (occurrence: US)
  Receive Date: 20210525
  Receipt Date: 20210525
  Transmission Date: 20210717
  Serious: No
  Sender: FDA-Public Use
  Company Number: None

PATIENT
  Sex: Male

DRUGS (3)
  1. CABOMETYX [Suspect]
     Active Substance: CABOZANTINIB S-MALATE
     Indication: RENAL CANCER
     Route: 048
     Dates: start: 20210513
  2. LOSARTAN POT TAB [Concomitant]
     Dates: start: 20201213
  3. CARVEDILOL TAB [Concomitant]
     Active Substance: CARVEDILOL
     Dates: start: 20201216

REACTIONS (4)
  - Fatigue [None]
  - Taste disorder [None]
  - Headache [None]
  - Nausea [None]
